FAERS Safety Report 22658376 (Version 1)
Quarter: 2023Q2

REPORT INFORMATION
  Report Type: Spontaneous
  Country: US (occurrence: US)
  Receive Date: 20230630
  Receipt Date: 20230630
  Transmission Date: 20230721
  Serious: No
  Sender: FDA-Public Use
  Company Number: ENDG22-07321

PATIENT
  Age: 56 Year
  Sex: Female

DRUGS (1)
  1. CALCITONIN SALMON [Suspect]
     Active Substance: CALCITONIN SALMON
     Indication: Osteoporosis
     Dosage: 1 DF, DAILY (ALTERNATE NOSTRILS)
     Route: 045
     Dates: start: 20221205

REACTIONS (2)
  - Rhinalgia [Unknown]
  - Product odour abnormal [Unknown]

NARRATIVE: CASE EVENT DATE: 20221205
